FAERS Safety Report 19103120 (Version 1)
Quarter: 2021Q2

REPORT INFORMATION
  Report Type: Spontaneous
  Country: US (occurrence: US)
  Receive Date: 20210407
  Receipt Date: 20210407
  Transmission Date: 20210717
  Serious: Yes (Other)
  Sender: FDA-Public Use
  Company Number: US-GLAXOSMITHKLINE-US2021GSK075801

PATIENT
  Sex: Female

DRUGS (7)
  1. RANITIDINE. [Suspect]
     Active Substance: RANITIDINE
     Dosage: UNK
  2. ZANTAC [Suspect]
     Active Substance: RANITIDINE HYDROCHLORIDE
     Indication: ABDOMINAL DISCOMFORT
     Dosage: 150 MG PRESCRIPTION
     Route: 065
     Dates: start: 200501, end: 201907
  3. ZANTAC [Suspect]
     Active Substance: RANITIDINE HYDROCHLORIDE
     Dosage: TWICE A DAY
     Route: 065
     Dates: start: 200501, end: 201907
  4. RANITIDINE. [Suspect]
     Active Substance: RANITIDINE
     Indication: ABDOMINAL DISCOMFORT
     Dosage: 150 MG
     Route: 065
     Dates: start: 201301, end: 201907
  5. ZANTAC [Suspect]
     Active Substance: RANITIDINE HYDROCHLORIDE
     Indication: ABDOMINAL DISCOMFORT
     Dosage: 150 MG PRESCRIPTION
     Route: 065
     Dates: start: 200501, end: 201907
  6. RANITIDINE. [Suspect]
     Active Substance: RANITIDINE
     Indication: ABDOMINAL DISCOMFORT
     Dosage: 150 MG
     Route: 065
     Dates: start: 201301, end: 201907
  7. ZANTAC [Suspect]
     Active Substance: RANITIDINE HYDROCHLORIDE
     Dosage: TWICE A DAY
     Route: 065
     Dates: start: 200501, end: 201907

REACTIONS (1)
  - Lung neoplasm malignant [Unknown]
